APPROVED DRUG PRODUCT: FLUOROURACIL
Active Ingredient: FLUOROURACIL
Strength: 5%
Dosage Form/Route: CREAM;TOPICAL
Application: A090368 | Product #001 | TE Code: AB
Applicant: TARO PHARMACEUTICAL INDUSTRIES LTD
Approved: Mar 5, 2010 | RLD: No | RS: No | Type: RX